FAERS Safety Report 4988129-0 (Version None)
Quarter: 2006Q2

REPORT INFORMATION
  Report Type: 
  Country: None (occurrence: None)
  Receive Date: 20060501
  Receipt Date: 20050930
  Transmission Date: 20061013
  Serious: Yes (Hospitalization)
  Sender: FDA-Public Use
  Company Number: US-MERCK-0510USA01240

PATIENT
  Age: 71 Year
  Sex: Female
  Weight: 63 kg

DRUGS (10)
  1. VIOXX [Suspect]
     Indication: ARTHRITIS
     Route: 048
     Dates: start: 19991201, end: 20010101
  2. ZYPREXA [Concomitant]
     Route: 048
  3. ZOLOFT [Concomitant]
     Route: 048
  4. DILTIAZEM HYDROCHLORIDE [Concomitant]
     Route: 048
  5. DILANTIN [Concomitant]
     Route: 048
  6. NITROGLYCERIN [Concomitant]
     Indication: CHEST PAIN
     Route: 065
  7. CHROMAGEN CAPSULES [Concomitant]
     Route: 048
  8. COLACE [Concomitant]
     Route: 048
  9. VITAMIN E [Concomitant]
     Route: 048
  10. MAGNESIA [MILK OF] [Concomitant]
     Indication: CONSTIPATION
     Route: 065

REACTIONS (23)
  - ASTHENIA [None]
  - CARDIAC FAILURE CONGESTIVE [None]
  - CARDIOVASCULAR DISORDER [None]
  - CEREBROVASCULAR ACCIDENT [None]
  - DECUBITUS ULCER [None]
  - FALL [None]
  - HYDRONEPHROSIS [None]
  - HYPERTHYROIDISM [None]
  - HYPOVOLAEMIA [None]
  - INTERNATIONAL NORMALISED RATIO INCREASED [None]
  - KIDNEY SMALL [None]
  - LIVER DISORDER [None]
  - MYOCARDIAL INFARCTION [None]
  - NEPHROSCLEROSIS [None]
  - PROTHROMBIN TIME PROLONGED [None]
  - PULMONARY EMBOLISM [None]
  - RENAL DISORDER [None]
  - RENAL FAILURE [None]
  - SINUS TACHYCARDIA [None]
  - THYROID FUNCTION TEST ABNORMAL [None]
  - TRICUSPID VALVE INCOMPETENCE [None]
  - URINARY TRACT INFECTION [None]
  - VENTRICULAR HYPERTROPHY [None]
